FAERS Safety Report 8830831 (Version 1)
Quarter: 2012Q4

REPORT INFORMATION
  Report Type: 
  Country: IT (occurrence: IT)
  Receive Date: 20121008
  Receipt Date: 20121008
  Transmission Date: 20130627
  Serious: Yes (Hospitalization)
  Sender: FDA-Public Use
  Company Number: IT-ASTRAZENECA-2012SE75126

PATIENT
  Age: 30090 Day
  Sex: Female

DRUGS (12)
  1. SEROQUEL [Suspect]
     Indication: HALLUCINATIONS, MIXED
     Dosage: 2+2 tablets/daily
     Route: 048
     Dates: start: 20120816
  2. SEROQUEL [Suspect]
     Indication: HALLUCINATIONS, MIXED
     Dosage: 1+1+2 tablets/daily
     Route: 048
     Dates: start: 20120817
  3. SEROQUEL [Suspect]
     Indication: HALLUCINATIONS, MIXED
     Dosage: 1+1 tablets/daily
     Route: 048
  4. LORAZEPAM [Suspect]
     Indication: INSOMNIA
     Route: 048
  5. LORAZEPAM [Suspect]
     Indication: INSOMNIA
     Route: 048
     Dates: start: 20120823
  6. PANTOPRAZOLE [Concomitant]
     Route: 048
  7. COUMADIN [Concomitant]
     Route: 048
  8. LASIX [Concomitant]
     Route: 048
  9. NAPRILENE [Concomitant]
     Route: 048
  10. NITROSYLON [Concomitant]
     Dosage: 10mg/24hrs transdermal patch
     Route: 062
  11. EPARGRISEOVIT [Concomitant]
     Route: 042
  12. ACTRAPHANE [Concomitant]
     Route: 058

REACTIONS (2)
  - Drop attacks [Recovering/Resolving]
  - Cervical vertebral fracture [Recovering/Resolving]
